FAERS Safety Report 14734014 (Version 2)
Quarter: 2018Q2

REPORT INFORMATION
  Report Type: Spontaneous
  Country: IT (occurrence: IT)
  Receive Date: 20180409
  Receipt Date: 20180520
  Transmission Date: 20180711
  Serious: Yes (Other)
  Sender: FDA-Public Use
  Company Number: IT-AUROBINDO-AUR-APL-2018-018894

PATIENT
  Age: 37 Year
  Sex: Female

DRUGS (1)
  1. PARACETAMOL [Suspect]
     Active Substance: ACETAMINOPHEN
     Indication: INFLUENZA
     Dosage: 500 MG, QD
     Route: 048
     Dates: start: 20180129, end: 20180130

REACTIONS (4)
  - Hypersensitivity [Recovering/Resolving]
  - Erythema [Recovering/Resolving]
  - Product use in unapproved indication [Unknown]
  - Confusional state [Recovering/Resolving]

NARRATIVE: CASE EVENT DATE: 20180130
